FAERS Safety Report 5497935-8 (Version None)
Quarter: 2007Q4

REPORT INFORMATION
  Report Type: 
  Country: None (occurrence: None)
  Receive Date: 20071025
  Receipt Date: 20071015
  Transmission Date: 20080405
  Serious: Yes (Other)
  Sender: FDA-Public Use
  Company Number: US-PFIZER INC-001-0073-980118

PATIENT
  Age: 30 Year
  Sex: Female

DRUGS (4)
  1. DILANTIN [Suspect]
     Indication: EPILEPSY
     Route: 048
  2. VITAMIN B-12 [Concomitant]
  3. VITAMIN CAP [Concomitant]
  4. FOLIC ACID [Concomitant]

REACTIONS (1)
  - ABORTION SPONTANEOUS [None]
